FAERS Safety Report 9146141 (Version 1)
Quarter: 2013Q1

REPORT INFORMATION
  Report Type: Spontaneous
  Country: US (occurrence: None)
  Receive Date: 20130226
  Receipt Date: 20130226
  Transmission Date: 20140127
  Serious: Yes (Death)
  Sender: FDA-Public Use
  Company Number: US-ZYDUS-000955

PATIENT
  Sex: Male

DRUGS (2)
  1. TRAMADOL (TRAMADOL) [Suspect]
  2. FORMALDEHDE (FORMALDEHYDE) [Concomitant]

REACTIONS (3)
  - Completed suicide [None]
  - Overdose [None]
  - Accidental death [None]
